FAERS Safety Report 13165814 (Version 1)
Quarter: 2017Q1

REPORT INFORMATION
  Report Type: Spontaneous
  Country: US (occurrence: US)
  Receive Date: 20170126
  Receipt Date: 20170126
  Transmission Date: 20170428
  Serious: Yes (Hospitalization)
  Sender: FDA-Public Use
  Company Number: None

PATIENT
  Age: 52 Year
  Sex: Male
  Weight: 72.3 kg

DRUGS (1)
  1. VANCOMYCIN [Suspect]
     Active Substance: VANCOMYCIN
     Indication: DIABETIC FOOT
     Route: 042
     Dates: start: 20131213, end: 20131217

REACTIONS (1)
  - Renal tubular necrosis [None]

NARRATIVE: CASE EVENT DATE: 20131218
